FAERS Safety Report 4521103-7 (Version None)
Quarter: 2004Q4

REPORT INFORMATION
  Report Type: 
  Country: None (occurrence: None)
  Receive Date: 20041203
  Receipt Date: 20041122
  Transmission Date: 20050328
  Serious: Yes (Other)
  Sender: FDA-Public Use
  Company Number: GRWYE228524NOV04

PATIENT
  Age: 50 Year
  Sex: Female

DRUGS (2)
  1. EFFEXOR XR [Suspect]
     Indication: DEPRESSION
     Dosage: 150 MG 2X PER 1 DAY
     Route: 048
     Dates: start: 20040801
  2. ZYPREXA [Suspect]
     Dosage: 10 MG 1X PER 1 DAY
     Route: 048

REACTIONS (2)
  - DIPLOPIA [None]
  - DRUG INTERACTION [None]
